FAERS Safety Report 8891247 (Version 2)
Quarter: 2012Q4

REPORT INFORMATION
  Report Type: 
  Country: US (occurrence: US)
  Receive Date: 20121107
  Receipt Date: 20121217
  Transmission Date: 20130627
  Serious: No
  Sender: FDA-Public Use
  Company Number: US-VERTEX PHARMACEUTICAL INC.-2012-024131

PATIENT
  Age: 43 Year
  Sex: Female
  Weight: 113 kg

DRUGS (7)
  1. INCIVEK [Suspect]
     Indication: HEPATITIS C
     Dosage: 750 mg, tid
     Route: 048
     Dates: start: 20121102
  2. RIBAVIRIN [Suspect]
     Indication: HEPATITIS C
     Dosage: 600 mg, bid
     Route: 048
     Dates: start: 20121102
  3. PEGASYS [Suspect]
     Indication: HEPATITIS C
     Dosage: 180 ?g, qw
     Route: 058
     Dates: start: 20121102
  4. CLONAZEPAM [Concomitant]
     Dosage: 0.5 mg, bid
  5. EXCEDRIN MIGRAINE [Concomitant]
     Dosage: 1 DF, qid
  6. MELATONIN [Concomitant]
     Dosage: 1 DF, qd
  7. MIRALAX                            /00754501/ [Concomitant]
     Dosage: 17 g powder in 12-16 oz of fluid, qd

REACTIONS (2)
  - Rash macular [Recovered/Resolved]
  - Pruritus [Unknown]
